FAERS Safety Report 6296316-7 (Version None)
Quarter: 2009Q3

REPORT INFORMATION
  Report Type: 
  Country: None (occurrence: None)
  Receive Date: 20090804
  Receipt Date: 20090730
  Transmission Date: 20100115
  Serious: Yes (Other)
  Sender: FDA-Public Use
  Company Number: US-ASTRAZENECA-2009SE06342

PATIENT
  Sex: Female
  Weight: 36.3 kg

DRUGS (5)
  1. SYMBICORT [Suspect]
     Indication: ASTHMA
     Route: 055
  2. SINGULAIR [Concomitant]
  3. FLONASE [Concomitant]
  4. QUVAR [Concomitant]
     Indication: ASTHMA
  5. PREDNISOLONE [Concomitant]
     Route: 048

REACTIONS (2)
  - EOSINOPHILIC PNEUMONIA [None]
  - WEIGHT DECREASED [None]
